FAERS Safety Report 15879234 (Version 1)
Quarter: 2019Q1

REPORT INFORMATION
  Report Type: Spontaneous
  Country: US (occurrence: US)
  Receive Date: 20190103
  Receipt Date: 20190103
  Transmission Date: 20190417
  Serious: No
  Sender: FDA-Public Use
  Company Number: None

PATIENT
  Age: 55 Year
  Sex: Male
  Weight: 82.92 kg

DRUGS (12)
  1. LACTULOSE. [Concomitant]
     Active Substance: LACTULOSE
  2. PROCHLORPERAZINE. [Concomitant]
     Active Substance: PROCHLORPERAZINE
  3. SPIRONCLACTONE [Concomitant]
  4. TRANEXAMIC ACID. [Concomitant]
     Active Substance: TRANEXAMIC ACID
  5. ONDANSETRON [Concomitant]
     Active Substance: ONDANSETRON
  6. BISACODYL. [Concomitant]
     Active Substance: BISACODYL
  7. LIDOCAINE. [Concomitant]
     Active Substance: LIDOCAINE
  8. EPCLUSA [Suspect]
     Active Substance: SOFOSBUVIR\VELPATASVIR
     Indication: HEPATITIS C
     Dosage: ?          OTHER DOSE:400 / 100;OTHER FREQUENCY:1 X / DAY;?
     Route: 048
     Dates: start: 20180309
  9. ALBUTEROL HFA INHALER [Concomitant]
  10. FOLIC ACID. [Suspect]
     Active Substance: FOLIC ACID
  11. FUROSEMIDE. [Concomitant]
     Active Substance: FUROSEMIDE
  12. SENNOSIDES. [Concomitant]
     Active Substance: SENNOSIDES

REACTIONS (3)
  - Haemorrhoids [None]
  - Gastrointestinal haemorrhage [None]
  - Mallory-Weiss syndrome [None]

NARRATIVE: CASE EVENT DATE: 20180901
